FAERS Safety Report 7439104-8 (Version None)
Quarter: 2011Q2

REPORT INFORMATION
  Report Type: 
  Country: None (occurrence: None)
  Receive Date: 20110427
  Receipt Date: 20110331
  Transmission Date: 20111010
  Serious: Yes (Other)
  Sender: FDA-Public Use
  Company Number: BE-JNJFOC-20110400119

PATIENT
  Age: 79 Year
  Sex: Female
  Weight: 69 kg

DRUGS (3)
  1. CAELYX [Suspect]
     Indication: OVARIAN CANCER RECURRENT
     Route: 042
  2. CAELYX [Suspect]
     Dosage: REDUCED TO 10% OF TOTAL DOSE
     Route: 042
  3. CAELYX [Suspect]
     Route: 042

REACTIONS (4)
  - HAEMATOTOXICITY [None]
  - SKIN LESION [None]
  - MUCOSAL INFLAMMATION [None]
  - SKIN EXFOLIATION [None]
